FAERS Safety Report 10155527 (Version 2)
Quarter: 2014Q2

REPORT INFORMATION
  Report Type: Spontaneous
  Country: FR (occurrence: FR)
  Receive Date: 20140506
  Receipt Date: 20140612
  Transmission Date: 20141212
  Serious: Yes (Hospitalization)
  Sender: FDA-Public Use
  Company Number: FR-PFIZER INC-2014122178

PATIENT
  Sex: Female
  Weight: 49 kg

DRUGS (1)
  1. MINIDRIL [Suspect]
     Dosage: LEVONORGESTREL 150UG/ETHINYL ESTRADIOL 30UG

REACTIONS (10)
  - Hypersensitivity [Recovered/Resolved]
  - Gastroenteritis [Unknown]
  - Abdominal pain upper [Unknown]
  - Diarrhoea [Unknown]
  - Nausea [Unknown]
  - Pyrexia [Recovered/Resolved]
  - Candida infection [Recovered/Resolved]
  - Fatigue [Recovered/Resolved]
  - Weight decreased [Unknown]
  - Vomiting [Unknown]
